FAERS Safety Report 6028483-4 (Version None)
Quarter: 2009Q1

REPORT INFORMATION
  Report Type: 
  Country: None (occurrence: None)
  Receive Date: 20090106
  Receipt Date: 20081224
  Transmission Date: 20090719
  Serious: Yes (Hospitalization)
  Sender: FDA-Public Use
  Company Number: US-ASTRAZENECA-2008AC03478

PATIENT
  Age: 29 Year
  Sex: Female

DRUGS (8)
  1. SEROQUEL [Suspect]
     Route: 048
  2. ARIPIPRAZOLE [Suspect]
     Route: 065
  3. HYDROXYZINE PAMOATE [Suspect]
     Route: 065
  4. CYCLOBENZAPRINE HCL [Suspect]
  5. LAMOTRIGINE [Suspect]
  6. ESCITALOPRAM [Concomitant]
  7. BENZTROPINE MESYLATE [Concomitant]
  8. ALBUTEROL [Concomitant]

REACTIONS (2)
  - DIPLOPIA [None]
  - STRABISMUS [None]
